FAERS Safety Report 7300478-X (Version None)
Quarter: 2011Q1

REPORT INFORMATION
  Report Type: 
  Country: None (occurrence: None)
  Receive Date: 20110217
  Receipt Date: 20110214
  Transmission Date: 20110831
  Serious: Yes (Life-Threatening, Hospitalization, Disabling, Other)
  Sender: FDA-Public Use
  Company Number: US-ABBOTT-11P-163-0705428-00

PATIENT
  Sex: Male

DRUGS (1)
  1. HUMIRA [Suspect]
     Indication: PRODUCT USED FOR UNKNOWN INDICATION
     Dosage: X5-6MONS
     Route: 058
     Dates: start: 20100701, end: 20110101

REACTIONS (4)
  - CROHN'S DISEASE [None]
  - BLINDNESS [None]
  - CARDIAC ARREST [None]
  - PROGRESSIVE MULTIFOCAL LEUKOENCEPHALOPATHY [None]
